FAERS Safety Report 6965971-8 (Version None)
Quarter: 2010Q3

REPORT INFORMATION
  Report Type: 
  Country: None (occurrence: None)
  Receive Date: 20100903
  Receipt Date: 20100825
  Transmission Date: 20110219
  Serious: Yes (Other)
  Sender: FDA-Public Use
  Company Number: IN-PFIZER INC-2010087189

PATIENT
  Age: 39 Year
  Sex: Female

DRUGS (6)
  1. SERTRALINE HYDROCHLORIDE [Suspect]
     Indication: PANIC ATTACK
     Dosage: 25 MG, PER DAY
  2. SERTRALINE HYDROCHLORIDE [Suspect]
     Dosage: 50 MG, PER DAY
  3. ALPRAZOLAM [Suspect]
     Dosage: 0.5MG PER DAY / INTERMITTENTLY
  4. PAROXETINE [Suspect]
     Indication: PANIC ATTACK
     Dosage: 12.5 MG, PER DAY
  5. PROPRANOLOL [Suspect]
     Indication: PANIC ATTACK
     Dosage: 40MG PER DAY / INTERMITTENTLY
  6. CLONAZEPAM [Suspect]
     Indication: PANIC ATTACK
     Dosage: 1.5 MG, UNK

REACTIONS (3)
  - CROSS SENSITIVITY REACTION [None]
  - DRUG ERUPTION [None]
  - DRUG INEFFECTIVE [None]
